FAERS Safety Report 7888968-2 (Version None)
Quarter: 2011Q4

REPORT INFORMATION
  Report Type: 
  Country: None (occurrence: None)
  Receive Date: 20111103
  Receipt Date: 20111025
  Transmission Date: 20120403
  Serious: Yes (Other)
  Sender: FDA-Public Use
  Company Number: PHHY2011US66181

PATIENT
  Sex: Male
  Weight: 75 kg

DRUGS (1)
  1. EXJADE [Suspect]
     Indication: MYELODYSPLASTIC SYNDROME
     Dosage: 1500 MG, DAILY
     Route: 048
     Dates: start: 20110712

REACTIONS (4)
  - WHITE BLOOD CELL COUNT DECREASED [None]
  - INFLUENZA [None]
  - FULL BLOOD COUNT DECREASED [None]
  - DIARRHOEA [None]
